FAERS Safety Report 16216724 (Version 1)
Quarter: 2019Q2

REPORT INFORMATION
  Report Type: Spontaneous
  Country: US (occurrence: US)
  Receive Date: 20190419
  Receipt Date: 20190419
  Transmission Date: 20190711
  Serious: Yes (Hospitalization, Other)
  Sender: FDA-Public Use
  Company Number: US-ASTRAZENECA-2019SE58697

PATIENT
  Sex: Male

DRUGS (2)
  1. MOVANTIK [Suspect]
     Active Substance: NALOXEGOL OXALATE
     Indication: CONSTIPATION
     Dosage: DAILY
     Route: 048
  2. OXYCODONE [Concomitant]
     Active Substance: OXYCODONE
     Indication: PAIN
     Dates: start: 201903

REACTIONS (4)
  - Cancer pain [Not Recovered/Not Resolved]
  - Bacteraemia [Not Recovered/Not Resolved]
  - Pancreatic carcinoma [Unknown]
  - Parotid duct obstruction [Not Recovered/Not Resolved]

NARRATIVE: CASE EVENT DATE: 201903
